FAERS Safety Report 25500815 (Version 1)
Quarter: 2025Q3

REPORT INFORMATION
  Report Type: Spontaneous
  Country: JP (occurrence: JP)
  Receive Date: 20250701
  Receipt Date: 20250701
  Transmission Date: 20251021
  Serious: Yes (Death)
  Sender: BAUSCH AND LOMB
  Company Number: JP-BAUSCH-BL-2025-008001

PATIENT
  Age: 8 Decade
  Sex: Male

DRUGS (2)
  1. MOVIPREP [Suspect]
     Active Substance: ASCORBIC ACID\POLYETHYLENE GLYCOL 3350\POTASSIUM CHLORIDE\SODIUM ASCORBATE\SODIUM CHLORIDE\SODIUM SU
     Indication: Colonoscopy
     Dates: start: 20230712, end: 20230713
  2. MOVIPREP [Suspect]
     Active Substance: ASCORBIC ACID\POLYETHYLENE GLYCOL 3350\POTASSIUM CHLORIDE\SODIUM ASCORBATE\SODIUM CHLORIDE\SODIUM SU
     Route: 065

REACTIONS (6)
  - Intestinal obstruction [Fatal]
  - Gastrointestinal necrosis [Fatal]
  - Blood pressure decreased [Fatal]
  - Physical deconditioning [Fatal]
  - Tachypnoea [Fatal]
  - Sepsis [Fatal]

NARRATIVE: CASE EVENT DATE: 20230701
